FAERS Safety Report 6189990-7 (Version None)
Quarter: 2009Q2

REPORT INFORMATION
  Report Type: 
  Country: None (occurrence: None)
  Receive Date: 20090514
  Receipt Date: 20090511
  Transmission Date: 20091009
  Serious: Yes (Life-Threatening, Hospitalization)
  Sender: FDA-Public Use
  Company Number: DE-ASTRAZENECA-2009PK01254

PATIENT
  Age: 82 Year
  Sex: Female
  Weight: 94 kg

DRUGS (5)
  1. SEROQUEL [Suspect]
     Indication: DEPRESSION
     Route: 048
     Dates: start: 20070101, end: 20081003
  2. TREVILOR [Suspect]
     Indication: DEPRESSION
     Route: 048
     Dates: start: 20070101, end: 20081001
  3. TREVILOR [Suspect]
     Route: 048
     Dates: start: 20081001
  4. ZOPICLONE [Concomitant]
     Indication: SLEEP DISORDER
     Route: 048
     Dates: start: 20000101
  5. NIF-TEN [Concomitant]
     Indication: HYPERTENSION
     Dosage: 1DF= 25MG ATENOLOL + 10MG NIFEDIPIN
     Route: 048
     Dates: start: 20000101, end: 20080929

REACTIONS (1)
  - TORSADE DE POINTES [None]
